FAERS Safety Report 7917181-5 (Version None)
Quarter: 2011Q4

REPORT INFORMATION
  Report Type: 
  Country: None (occurrence: None)
  Receive Date: 20111116
  Receipt Date: 20111109
  Transmission Date: 20120403
  Serious: Yes (Other)
  Sender: FDA-Public Use
  Company Number: US-AMGEN-USASP2011058996

PATIENT
  Age: 46 Year
  Sex: Female

DRUGS (2)
  1. ENBREL [Suspect]
     Indication: RHEUMATOID ARTHRITIS
     Dosage: 25 MG, 2 TIMES/WK
     Dates: start: 20010101
  2. HUMIRA [Concomitant]
     Dosage: UNK
     Dates: end: 20100601

REACTIONS (14)
  - INJECTION SITE PRURITUS [None]
  - RASH [None]
  - INJECTION SITE SWELLING [None]
  - INJECTION SITE ERYTHEMA [None]
  - NECK INJURY [None]
  - LUMBAR SPINAL STENOSIS [None]
  - INTERVERTEBRAL DISC DEGENERATION [None]
  - ROAD TRAFFIC ACCIDENT [None]
  - ARTHRALGIA [None]
  - BACK INJURY [None]
  - LUNG INFECTION [None]
  - DEPRESSED MOOD [None]
  - RHEUMATOID ARTHRITIS [None]
  - INJECTION SITE REACTION [None]
